FAERS Safety Report 23020312 (Version 2)
Quarter: 2023Q4

REPORT INFORMATION
  Report Type: Spontaneous
  Country: GB (occurrence: GB)
  Receive Date: 20231003
  Receipt Date: 20231109
  Transmission Date: 20240109
  Serious: No
  Sender: FDA-Public Use
  Company Number: GB-PFIZER INC-PV202300152082

PATIENT
  Sex: Female

DRUGS (1)
  1. GENOTROPIN [Suspect]
     Active Substance: SOMATROPIN
     Indication: Growth hormone deficiency
     Dosage: 0.3 MG
     Route: 058

REACTIONS (4)
  - Drug dose omission by device [Unknown]
  - Device failure [Unknown]
  - Device mechanical issue [Unknown]
  - Device breakage [Unknown]
